FAERS Safety Report 20847503 (Version 2)
Quarter: 2022Q2

REPORT INFORMATION
  Report Type: Spontaneous
  Country: US (occurrence: US)
  Receive Date: 20220519
  Receipt Date: 20220613
  Transmission Date: 20220721
  Serious: Yes (Other)
  Sender: FDA-Public Use
  Company Number: US-BRISTOL-MYERS SQUIBB COMPANY-2022-034990

PATIENT
  Age: 73 Year
  Sex: Female

DRUGS (3)
  1. POMALYST [Suspect]
     Active Substance: POMALIDOMIDE
     Indication: Plasma cell myeloma
     Dosage: TAKE 1 WHOLE CAPSULE BY MOUTH WITH WATER, WITH OR WITHOUT FOOD AT THE SAME TIME EVERY DAY ON DAYS 1-
     Route: 048
     Dates: start: 20220331
  2. POMALYST [Suspect]
     Active Substance: POMALIDOMIDE
     Route: 048
  3. CYTOXAN [Concomitant]
     Active Substance: CYCLOPHOSPHAMIDE
     Indication: Product used for unknown indication

REACTIONS (10)
  - Nausea [Unknown]
  - Uterine infection [Recovered/Resolved]
  - Neuropathy peripheral [Unknown]
  - Skin exfoliation [Recovered/Resolved]
  - Diarrhoea [Recovered/Resolved]
  - Dysuria [Recovered/Resolved]
  - Erythema [Unknown]
  - Fatigue [Unknown]
  - Hypotonia [Unknown]
  - Rash [Unknown]
